FAERS Safety Report 4310922-8 (Version None)
Quarter: 2004Q1

REPORT INFORMATION
  Report Type: 
  Country: None (occurrence: None)
  Receive Date: 20040302
  Receipt Date: 20040218
  Transmission Date: 20041129
  Serious: Yes (Death, Hospitalization)
  Sender: FDA-Public Use
  Company Number: US-JNJFOC-20040203783

PATIENT
  Age: 70 Year
  Sex: Male

DRUGS (2)
  1. DOXIL [Suspect]
     Indication: PROSTATE CANCER
     Dosage: EVERY 21 DAYS X3 CYCLES
     Dates: start: 20030701
  2. TAXOTERE [Suspect]
     Indication: PROSTATE CANCER
     Dates: start: 20030701

REACTIONS (10)
  - ATRIAL FIBRILLATION [None]
  - GENERAL PHYSICAL HEALTH DETERIORATION [None]
  - HYPOTENSION [None]
  - LOSS OF CONSCIOUSNESS [None]
  - MENTAL STATUS CHANGES [None]
  - PNEUMONIA [None]
  - PNEUMONITIS CHEMICAL [None]
  - RETROPERITONEAL HAEMORRHAGE [None]
  - SPINAL CORD COMPRESSION [None]
  - TACHYPNOEA [None]
